FAERS Safety Report 6644430-6 (Version None)
Quarter: 2010Q1

REPORT INFORMATION
  Report Type: 
  Country: None (occurrence: None)
  Receive Date: 20100304
  Receipt Date: 20090629
  Transmission Date: 20100710
  Serious: Yes (Other)
  Sender: FDA-Public Use
  Company Number: US-003050

PATIENT
  Age: 53 Year
  Sex: Female
  Weight: 55 kg

DRUGS (2)
  1. ISOVUE-300 [Suspect]
     Indication: ABDOMEN SCAN
     Dosage: 150 ML QD INTRAVENOUS (NOT OTHERWISE SPECIFIED)
     Route: 042
     Dates: start: 20090624, end: 20090624
  2. ISOVUE-300 [Suspect]
     Indication: OVARIAN CYST
     Dosage: 150 ML QD INTRAVENOUS (NOT OTHERWISE SPECIFIED)
     Route: 042
     Dates: start: 20090624, end: 20090624

REACTIONS (1)
  - ANAPHYLACTOID REACTION [None]
